FAERS Safety Report 5997225-0 (Version None)
Quarter: 2008Q4

REPORT INFORMATION
  Report Type: 
  Country: None (occurrence: None)
  Receive Date: 20081212
  Receipt Date: 20081105
  Transmission Date: 20090506
  Serious: No
  Sender: FDA-Public Use
  Company Number: US-ABBOTT-08P-163-0486175-00

PATIENT
  Sex: Female
  Weight: 99.88 kg

DRUGS (3)
  1. HUMIRA [Suspect]
     Indication: PSORIASIS
     Dosage: LOADING DOSE
     Route: 058
     Dates: start: 20081029, end: 20081029
  2. HUMIRA [Suspect]
     Route: 058
     Dates: start: 20081105
  3. HORMONE REPLACEMENT DRUG [Concomitant]
     Indication: HORMONE REPLACEMENT THERAPY

REACTIONS (3)
  - BONE PAIN [None]
  - DRUG DELIVERY SYSTEM MALFUNCTION [None]
  - INCORRECT DOSE ADMINISTERED [None]
